FAERS Safety Report 5906086-7 (Version None)
Quarter: 2008Q4

REPORT INFORMATION
  Report Type: 
  Country: None (occurrence: None)
  Receive Date: 20081002
  Receipt Date: 20080924
  Transmission Date: 20090506
  Serious: Yes (Other)
  Sender: FDA-Public Use
  Company Number: PHBS2008ES05753

PATIENT

DRUGS (1)
  1. ZOLEDRONIC ACID [Suspect]
     Indication: OSTEITIS DEFORMANS
     Dosage: 5 MG, UNK
     Dates: start: 20060101

REACTIONS (1)
  - ATRIAL FIBRILLATION [None]
